FAERS Safety Report 18354800 (Version 3)
Quarter: 2021Q2

REPORT INFORMATION
  Report Type: Other
  Country: TR (occurrence: TR)
  Receive Date: 20201007
  Receipt Date: 20210409
  Transmission Date: 20210717
  Serious: Yes (Hospitalization)
  Sender: FDA-Public Use
  Company Number: TR-ROCHE-2691116

PATIENT
  Age: 40 Year
  Sex: Female
  Weight: 81 kg

DRUGS (15)
  1. AVIJECT [Concomitant]
     Indication: PREMEDICATION
     Route: 042
     Dates: start: 20190621, end: 20190621
  2. TAMOL (TURKEY) [Concomitant]
     Route: 048
     Dates: start: 20200114, end: 20200114
  3. FAMPYRA [Concomitant]
     Active Substance: DALFAMPRIDINE
     Route: 048
     Dates: start: 20181002
  4. OCRELIZUMAB. [Suspect]
     Active Substance: OCRELIZUMAB
     Dosage: 600 MG/500 ML?MOST RECENT DOSE RECEIVED ON 14/JAN/2020.
     Route: 042
     Dates: start: 20200114, end: 20200114
  5. UROMISIN [Concomitant]
     Route: 048
     Dates: start: 20210316
  6. DEXOJECT [Concomitant]
     Route: 042
     Dates: start: 20200114, end: 20200114
  7. AVIL [Concomitant]
     Active Substance: PHENIRAMINE
     Indication: PREMEDICATION
     Route: 042
     Dates: start: 20190705, end: 20190705
  8. SECITA [Concomitant]
     Route: 048
     Dates: start: 2018
  9. DEXOJECT [Concomitant]
     Indication: PREMEDICATION
     Route: 042
     Dates: start: 20190621, end: 20190621
  10. TAMOL (TURKEY) [Concomitant]
     Route: 048
     Dates: start: 20190621, end: 20190621
  11. TAMOL (TURKEY) [Concomitant]
     Route: 048
     Dates: start: 20190705, end: 20190705
  12. OCRELIZUMAB. [Suspect]
     Active Substance: OCRELIZUMAB
     Indication: PRIMARY PROGRESSIVE MULTIPLE SCLEROSIS
     Dosage: 300 MG/250 ML
     Route: 042
     Dates: start: 20190621, end: 20190621
  13. DEXOJECT [Concomitant]
     Route: 042
     Dates: start: 20190705, end: 20190705
  14. OCRELIZUMAB. [Suspect]
     Active Substance: OCRELIZUMAB
     Dosage: 300 MG/250 ML
     Route: 042
     Dates: start: 20190705, end: 20190705
  15. CAUPHE [Concomitant]
     Indication: PREMEDICATION
     Route: 042
     Dates: start: 20200114, end: 20200114

REACTIONS (2)
  - Hepatic steatosis [Recovered/Resolved]
  - Cholelithiasis [Recovered/Resolved]

NARRATIVE: CASE EVENT DATE: 20200729
